FAERS Safety Report 9665119 (Version 2)
Quarter: 2013Q4

REPORT INFORMATION
  Report Type: Spontaneous
  Country: US (occurrence: US)
  Receive Date: 20131101
  Receipt Date: 20131204
  Transmission Date: 20140711
  Serious: Yes (Hospitalization)
  Sender: FDA-Public Use
  Company Number: US-ASTRAZENECA-2013SE78344

PATIENT
  Age: 322 Day
  Sex: Male
  Weight: 9 kg

DRUGS (15)
  1. SYNAGIS [Suspect]
     Indication: ANTIVIRAL PROPHYLAXIS
     Route: 030
     Dates: start: 20130829
  2. SYNAGIS [Suspect]
     Indication: ANTIVIRAL PROPHYLAXIS
     Dosage: 15 MG/KG, QMTH
     Route: 030
     Dates: start: 20130924
  3. SYNAGIS [Suspect]
     Indication: ANTIVIRAL PROPHYLAXIS
     Route: 030
     Dates: start: 20131106
  4. ALBUTEROL [Concomitant]
  5. AMOXICILLIN [Concomitant]
  6. BACTROBAN [Concomitant]
  7. BUDESONIDE [Concomitant]
  8. DIURIL [Concomitant]
  9. ERYTHROMYCIN [Concomitant]
  10. GLYCOPYRROL [Concomitant]
  11. HYDROCORTISONE [Concomitant]
  12. KETOCONAZOLE [Concomitant]
  13. LACTULOSE [Concomitant]
  14. SODIUM CHLORIDE [Concomitant]
  15. SPIRONOLACTONE [Concomitant]

REACTIONS (1)
  - Carbon dioxide increased [Recovered/Resolved]
